FAERS Safety Report 6715291-1 (Version None)
Quarter: 2010Q2

REPORT INFORMATION
  Report Type: 
  Country: None (occurrence: None)
  Receive Date: 20100506
  Receipt Date: 20100506
  Transmission Date: 20101027
  Serious: No
  Sender: FDA-Public Use
  Company Number: None

PATIENT
  Age: 52 Year
  Sex: Female
  Weight: 90.7194 kg

DRUGS (1)
  1. EVISTA [Suspect]
     Indication: OSTEOPENIA
     Dosage: 60MG QD PO
     Route: 048
     Dates: start: 20030916, end: 20031119

REACTIONS (9)
  - ANGER [None]
  - CHILLS [None]
  - CRYING [None]
  - FEELING OF BODY TEMPERATURE CHANGE [None]
  - HYPERHIDROSIS [None]
  - INAPPROPRIATE AFFECT [None]
  - MOOD SWINGS [None]
  - SPEECH DISORDER [None]
  - SUICIDAL IDEATION [None]
